FAERS Safety Report 6917646-9 (Version None)
Quarter: 2010Q3

REPORT INFORMATION
  Report Type: 
  Country: None (occurrence: None)
  Receive Date: 20100810
  Receipt Date: 20080506
  Transmission Date: 20110219
  Serious: No
  Sender: FDA-Public Use
  Company Number: US-WYE-H04016308

PATIENT
  Sex: Female

DRUGS (1)
  1. PROTONIX [Suspect]

REACTIONS (3)
  - ACCIDENTAL EXPOSURE [None]
  - RESPIRATORY TRACT IRRITATION [None]
  - THROAT IRRITATION [None]
